FAERS Safety Report 8932383 (Version 2)
Quarter: 2012Q4

REPORT INFORMATION
  Report Type: Report from Study
  Country: AU (occurrence: AU)
  Receive Date: 20121128
  Receipt Date: 20121204
  Transmission Date: 20130627
  Serious: Yes (Hospitalization)
  Sender: FDA-Public Use
  Company Number: AU-ROCHE-1159825

PATIENT
  Age: 78 Year
  Sex: Male

DRUGS (15)
  1. METHOXY POLYETHYLENE GLYCOL-EPOETIN BETA [Suspect]
     Indication: NEPHROGENIC ANAEMIA
     Route: 058
     Dates: start: 20111018
  2. NEXIUM [Concomitant]
  3. PRAZOSIN [Concomitant]
  4. FRUSEMIDE [Concomitant]
  5. ATENOLOL [Concomitant]
  6. SPIRONOLACTONE [Concomitant]
  7. AMLODIPINE [Concomitant]
  8. MIXTARD [Concomitant]
  9. ALLOPURINOL [Concomitant]
  10. PYRIDOXINE [Concomitant]
  11. MOVICOL [Concomitant]
  12. NORSPAN [Concomitant]
  13. CALCITROL [Concomitant]
  14. TEMAZEPAM [Concomitant]
  15. ASPIRIN [Concomitant]

REACTIONS (7)
  - Renal failure acute [Unknown]
  - Urinary tract infection [Unknown]
  - Dementia [Unknown]
  - Cardiac failure congestive [Unknown]
  - Cognitive disorder [Unknown]
  - Fall [Unknown]
  - Renal failure chronic [Unknown]
